FAERS Safety Report 17581517 (Version 1)
Quarter: 2020Q1

REPORT INFORMATION
  Report Type: Spontaneous
  Country: IT (occurrence: IT)
  Receive Date: 20200325
  Receipt Date: 20200325
  Transmission Date: 20200409
  Serious: Yes (Death)
  Sender: FDA-Public Use
  Company Number: IT-MYLANLABS-2020M1030740

PATIENT
  Age: 67 Year
  Sex: Male

DRUGS (4)
  1. COLISTIN [Suspect]
     Active Substance: COLISTIN
     Indication: SEPTIC SHOCK
     Dosage: 9 MIL LOADING DOSE
  2. VANCOMYCIN [Suspect]
     Active Substance: VANCOMYCIN
     Indication: KLEBSIELLA INFECTION
     Dosage: 2 GRAM, QD (2 G, DAILY)
  3. COLISTIN [Suspect]
     Active Substance: COLISTIN
     Dosage: 4.5 MILLILITER, BID
  4. MEROPENEM. [Suspect]
     Active Substance: MEROPENEM
     Indication: KLEBSIELLA INFECTION
     Dosage: 6 GRAM, QD (2 G, 3X/DAY)

REACTIONS (2)
  - Acute kidney injury [Fatal]
  - Therapy non-responder [Fatal]
